FAERS Safety Report 6670250-2 (Version None)
Quarter: 2010Q2

REPORT INFORMATION
  Report Type: 
  Country: None (occurrence: None)
  Receive Date: 20100406
  Receipt Date: 20100318
  Transmission Date: 20101027
  Serious: No
  Sender: FDA-Public Use
  Company Number: US-ALLERGAN-1003636US

PATIENT
  Sex: Female

DRUGS (4)
  1. LATISSE [Suspect]
     Indication: GROWTH OF EYELASHES
     Dosage: 1 GTT, QHS
     Dates: start: 20100222
  2. WELLBUTRIN [Concomitant]
     Indication: PAIN
  3. METHADONE HCL [Concomitant]
     Indication: PAIN
     Dosage: UNK
  4. VISINE                             /00256502/ [Concomitant]

REACTIONS (1)
  - MADAROSIS [None]
